FAERS Safety Report 9004977 (Version 2)
Quarter: 2013Q2

REPORT INFORMATION
  Report Type: Spontaneous
  Country: US (occurrence: None)
  Receive Date: 20120508
  Receipt Date: 20121107
  Transmission Date: 20140414
  Serious: Yes (Other)
  Sender: FDA-Public Use
  Company Number: 2012HGS-003100

PATIENT
  Age: 48 Year
  Sex: Female
  Weight: 110.68 kg

DRUGS (14)
  1. BENLYSTA [Suspect]
     Indication: SYSTEMIC LUPUS ERYTHEMATOSUS
     Route: 041
  2. SYNTHROID [Concomitant]
  3. TRILIPIX [Concomitant]
  4. FISH OIL [Concomitant]
  5. DICLOFENAC [Concomitant]
  6. VITAMIN D [Concomitant]
  7. ONDANSETRON [Concomitant]
  8. IMURAN [Concomitant]
  9. DEXILANT [Concomitant]
  10. VERAMYST NE [Concomitant]
  11. PLAQUENIL [Concomitant]
  12. HYDROCODONE [Concomitant]
  13. APRESOLINE [Concomitant]
  14. VOLTAREN [Concomitant]

REACTIONS (2)
  - Alopecia [None]
  - Drug ineffective [None]
